FAERS Safety Report 7723544-3 (Version None)
Quarter: 2011Q3

REPORT INFORMATION
  Report Type: 
  Country: None (occurrence: None)
  Receive Date: 20110901
  Receipt Date: 20110818
  Transmission Date: 20111222
  Serious: Yes (Hospitalization)
  Sender: FDA-Public Use
  Company Number: PHHY2011AR74393

PATIENT
  Sex: Female
  Weight: 150 kg

DRUGS (1)
  1. DIOVAN [Suspect]
     Indication: HYPERTENSION
     Dosage: 1 DF, 320 MG DAILY
     Dates: start: 20050101

REACTIONS (2)
  - OXYGEN CONSUMPTION DECREASED [None]
  - DYSPNOEA [None]
